FAERS Safety Report 20143430 (Version 1)
Quarter: 2021Q4

REPORT INFORMATION
  Report Type: Spontaneous
  Country: US (occurrence: US)
  Receive Date: 20211203
  Receipt Date: 20211203
  Transmission Date: 20220303
  Serious: Yes (Death, Other)
  Sender: FDA-Public Use
  Company Number: US-CELLTRION INC.-2021US016274

PATIENT

DRUGS (1)
  1. RITUXIMAB [Suspect]
     Active Substance: RITUXIMAB
     Indication: Cryoglobulinaemia
     Dosage: 375 MG/M2 (1ST CYCLE AND 1ST DOSE)

REACTIONS (4)
  - Death [Fatal]
  - Cryoglobulinaemia [Unknown]
  - Condition aggravated [Unknown]
  - Off label use [Unknown]
